FAERS Safety Report 9282062 (Version 1)
Quarter: 2013Q2

REPORT INFORMATION
  Report Type: Spontaneous
  Country: FR (occurrence: FR)
  Receive Date: 20130510
  Receipt Date: 20130510
  Transmission Date: 20140414
  Serious: Yes (Death)
  Sender: FDA-Public Use
  Company Number: FR-AMGEN-FRASP2013022637

PATIENT
  Sex: 0

DRUGS (3)
  1. ARANESP [Suspect]
     Indication: PRODUCT USED FOR UNKNOWN INDICATION
  2. ARANESP [Suspect]
  3. ARANESP [Suspect]

REACTIONS (3)
  - Neoplasm malignant [Fatal]
  - Injection site pain [Unknown]
  - Wrong technique in drug usage process [Unknown]
